FAERS Safety Report 4846152-0 (Version None)
Quarter: 2005Q4

REPORT INFORMATION
  Report Type: 
  Country: None (occurrence: None)
  Receive Date: 20051201
  Receipt Date: 20051119
  Transmission Date: 20060501
  Serious: Yes (Hospitalization)
  Sender: FDA-Public Use
  Company Number: 2005159343

PATIENT
  Age: 68 Year
  Sex: Male

DRUGS (6)
  1. ARTHROTEC [Suspect]
     Indication: RHEUMATOID ARTHRITIS
     Dosage: 75 MG (1 IN 1 D), ORAL
     Route: 048
     Dates: start: 20050620, end: 20050920
  2. METHYLPREDNISOLONE [Suspect]
     Indication: RHEUMATOID ARTHRITIS
     Dosage: 4 MG (1 I N1 D), ORAL
     Route: 048
     Dates: start: 20050620, end: 20050920
  3. METHOTREXATE [Concomitant]
  4. ENAPREN (ENALAPRIL MALEATE) [Concomitant]
  5. OPTINATE (RISEDRONATE SODIUM) [Concomitant]
  6. ALL OTHER THERAPEUTIC PRODUCTS (ALL OTHER THERAPEUTIC PRODUCTS) [Concomitant]

REACTIONS (6)
  - ABDOMINAL PAIN UPPER [None]
  - ANOREXIA [None]
  - DYSPEPSIA [None]
  - GASTRIC ULCER [None]
  - HAEMOGLOBIN DECREASED [None]
  - WEIGHT DECREASED [None]
